FAERS Safety Report 7604477-X (Version None)
Quarter: 2011Q3

REPORT INFORMATION
  Report Type: 
  Country: None (occurrence: None)
  Receive Date: 20110712
  Receipt Date: 20110706
  Transmission Date: 20111222
  Serious: Yes (Other)
  Sender: FDA-Public Use
  Company Number: US-AMGEN-USASP2011034368

PATIENT
  Age: 63 Year
  Sex: Male

DRUGS (5)
  1. NEULASTA [Suspect]
     Indication: CHEMOTHERAPY
     Dosage: UNK UNK, AFTER CHEMO
     Dates: start: 20070901, end: 20110401
  2. CISPLATIN [Concomitant]
     Dosage: UNK
     Dates: end: 20110401
  3. SANDOSTATIN [Concomitant]
     Dosage: UNK UNK, QMO
  4. CARBOPLATIN [Concomitant]
  5. ETOPOSIDE [Concomitant]
     Dosage: UNK
     Dates: end: 20110401

REACTIONS (7)
  - LETHARGY [None]
  - HEPATIC NEOPLASM MALIGNANT RECURRENT [None]
  - JOINT INJURY [None]
  - INFLUENZA LIKE ILLNESS [None]
  - HOT FLUSH [None]
  - BONE PAIN [None]
  - METASTASES TO LYMPH NODES [None]
